FAERS Safety Report 18457861 (Version 1)
Quarter: 2020Q4

REPORT INFORMATION
  Report Type: Spontaneous
  Country: US (occurrence: US)
  Receive Date: 20201103
  Receipt Date: 20201103
  Transmission Date: 20210114
  Serious: Yes (Other)
  Sender: FDA-Public Use
  Company Number: US-PFIZER INC-2020425127

PATIENT
  Age: 50 Year
  Sex: Female
  Weight: 88.44 kg

DRUGS (2)
  1. GLEEVEC [Concomitant]
     Active Substance: IMATINIB MESYLATE
     Dosage: UNK
  2. SUTENT [Suspect]
     Active Substance: SUNITINIB MALATE
     Indication: GASTROINTESTINAL STROMAL TUMOUR
     Dosage: 50 MG, DAILY(DAILY FOR 20 DAYS)
     Route: 048
     Dates: start: 20200923

REACTIONS (10)
  - Stomatitis [Recovered/Resolved]
  - Dry skin [Recovered/Resolved]
  - Skin lesion [Recovered/Resolved]
  - Neuropathy peripheral [Recovered/Resolved]
  - Taste disorder [Recovered/Resolved]
  - Hypotension [Recovered/Resolved]
  - Diarrhoea [Recovered/Resolved]
  - Constipation [Recovered/Resolved]
  - Dry mouth [Recovered/Resolved]
  - Rash [Recovered/Resolved]
